FAERS Safety Report 8852273 (Version 1)
Quarter: 2012Q4

REPORT INFORMATION
  Report Type: 
  Country: ES (occurrence: ES)
  Receive Date: 20121022
  Receipt Date: 20121022
  Transmission Date: 20130627
  Serious: Yes (Hospitalization)
  Sender: FDA-Public Use
  Company Number: ES-SANOFI-AVENTIS-2012SA075399

PATIENT
  Age: 3 Year
  Sex: Male

DRUGS (5)
  1. DESMOPRESSIN ACETATE [Suspect]
     Indication: CENTRAL DIABETES INSIPIDUS
     Route: 058
  2. DESMOPRESSIN ACETATE [Suspect]
     Indication: CENTRAL DIABETES INSIPIDUS
     Route: 058
  3. DESMOPRESSIN ACETATE [Suspect]
     Indication: CENTRAL DIABETES INSIPIDUS
     Route: 045
  4. PHENOBARBITAL [Concomitant]
  5. CAPTOPRIL [Concomitant]

REACTIONS (13)
  - Dehydration [Unknown]
  - Hypernatraemia [Recovered/Resolved]
  - Fluid imbalance [Recovered/Resolved]
  - Cerebral haemorrhage [Recovering/Resolving]
  - Hyperreflexia [Recovering/Resolving]
  - Extensor plantar response [Recovering/Resolving]
  - Sedation [Recovered/Resolved]
  - Brain oedema [Recovering/Resolving]
  - Quadriplegia [Recovering/Resolving]
  - Muscle spasticity [Recovering/Resolving]
  - Osmotic demyelination syndrome [Recovering/Resolving]
  - Cerebral infarction [Recovering/Resolving]
  - Hypotonia [Recovering/Resolving]
